FAERS Safety Report 6034544-6 (Version None)
Quarter: 2009Q1

REPORT INFORMATION
  Report Type: 
  Country: None (occurrence: None)
  Receive Date: 20090108
  Receipt Date: 20090108
  Transmission Date: 20090719
  Serious: Yes (Other)
  Sender: FDA-Public Use
  Company Number: None

PATIENT
  Sex: Female

DRUGS (2)
  1. NATALIZUMAB 300 MG BIOGEN IDEC [Suspect]
     Indication: RELAPSING-REMITTING MULTIPLE SCLEROSIS
     Dosage: 300 MG MONTHLY IV DRIP
     Route: 041
     Dates: start: 20081022, end: 20081210
  2. . [Concomitant]

REACTIONS (3)
  - ARTHROPATHY [None]
  - CONDITION AGGRAVATED [None]
  - PSORIASIS [None]
